FAERS Safety Report 6073389-8 (Version None)
Quarter: 2009Q1

REPORT INFORMATION
  Report Type: 
  Country: None (occurrence: None)
  Receive Date: 20090206
  Receipt Date: 20090127
  Transmission Date: 20090719
  Serious: Yes (Death)
  Sender: FDA-Public Use
  Company Number: 200812969BYL

PATIENT
  Age: 68 Year
  Sex: Male

DRUGS (9)
  1. FLUDARA [Suspect]
     Indication: PERIPHERAL T-CELL LYMPHOMA UNSPECIFIED STAGE IV
     Dosage: 60 MG ORAL
     Route: 048
     Dates: start: 20080428, end: 20080430
  2. CYCLOPHOSPHAMIDE [Concomitant]
  3. FAMOTIDINE [Concomitant]
  4. MAGLAX (MAGNESIUM OXIDE) [Concomitant]
  5. LEVOFLOXACIN [Concomitant]
  6. CYCLOPHOSPHAMIDE [Concomitant]
  7. DOXORUBICIN HYDROCHLORIDE (DOXORUBICIN HYDROCHLORIDE) [Concomitant]
  8. VINCRISTINE SULFATE [Concomitant]
  9. PREDNISOLONE [Concomitant]

REACTIONS (2)
  - HEPATIC FUNCTION ABNORMAL [None]
  - NON-HODGKIN'S LYMPHOMA [None]
